FAERS Safety Report 8577780 (Version 2)
Quarter: 2013Q1

REPORT INFORMATION
  Report Type: Spontaneous
  Country: US (occurrence: None)
  Receive Date: 20120518
  Receipt Date: 20121031
  Transmission Date: 20140127
  Serious: Yes (Hospitalization)
  Sender: FDA-Public Use
  Company Number: NGX_01085_2012

PATIENT
  Sex: Female
  Weight: 67.59 kg

DRUGS (13)
  1. QUTENZA [Suspect]
     Indication: POST HERPETIC NEURALGIA
     Dosage: (1 DF, [PATCH, APPLIED TO RIGHT SHOULDER/NECK AREA] TOPICAL)
     Dates: start: 20120423, end: 20120423
  2. NEURONTIN (UNKNOWN) [Concomitant]
  3. CYMBALTA [Concomitant]
  4. TOPAMAX [Concomitant]
  5. HYDROCODONE (UNKNOWN) [Concomitant]
  6. TOPICAL CREAM WITH KETAMINE 10%, CARBAMAZEPINE 2%, GABAPENTIN 6%, AND IMIPRAMINE 3%, LOPERAMIDE 3% [Concomitant]
  7. ACETAMINOPHEN [Concomitant]
  8. NITROFURANTIN [Concomitant]
  9. ALPRAZOLAM [Concomitant]
  10. SUCRALFATE [Concomitant]
  11. NEXIUM /01479302/ [Concomitant]
  12. GABAPENTIN [Concomitant]
  13. ONDANSETRON [Concomitant]

REACTIONS (5)
  - Post herpetic neuralgia [None]
  - Pain [None]
  - Condition aggravated [None]
  - Feeling hot [None]
  - Application site vesicles [None]
